FAERS Safety Report 13675855 (Version 1)
Quarter: 2017Q2

REPORT INFORMATION
  Report Type: Report from Study
  Country: CN (occurrence: CN)
  Receive Date: 20170621
  Receipt Date: 20170621
  Transmission Date: 20170830
  Serious: Yes (Death, Other)
  Sender: FDA-Public Use
  Company Number: CN-ROCHE-1924375

PATIENT
  Sex: Male
  Weight: 80 kg

DRUGS (1)
  1. AVASTIN [Suspect]
     Active Substance: BEVACIZUMAB
     Indication: ADENOCARCINOMA OF COLON
     Route: 041
     Dates: start: 20150116, end: 20170215

REACTIONS (5)
  - Postoperative adhesion [Fatal]
  - Infection [Fatal]
  - Coagulopathy [Fatal]
  - Intestinal obstruction [Unknown]
  - Embolism [Fatal]
